FAERS Safety Report 23097343 (Version 1)
Quarter: 2023Q4

REPORT INFORMATION
  Report Type: Spontaneous
  Country: US (occurrence: None)
  Receive Date: 20231023
  Receipt Date: 20231023
  Transmission Date: 20240110
  Serious: Yes (Other)
  Sender: FDA-Public Use
  Company Number: None

PATIENT
  Age: 52 Year
  Sex: Female
  Weight: 65.7 kg

DRUGS (4)
  1. VEOZAH [Suspect]
     Active Substance: FEZOLINETANT
     Indication: Menopause
     Dosage: OTHER QUANTITY : 1 TABLET(S);?FREQUENCY : DAILY;?
     Route: 048
     Dates: start: 20230629, end: 20231013
  2. GABAPENTIN [Concomitant]
     Active Substance: GABAPENTIN
  3. ZYRTEC [Concomitant]
     Active Substance: CETIRIZINE HYDROCHLORIDE
  4. PEPCID [Concomitant]
     Active Substance: FAMOTIDINE

REACTIONS (11)
  - Anxiety [None]
  - Photosensitivity reaction [None]
  - Feeling hot [None]
  - Syncope [None]
  - Seizure [None]
  - Urinary incontinence [None]
  - Brain fog [None]
  - Amnesia [None]
  - Blood pressure fluctuation [None]
  - Dizziness [None]
  - Fatigue [None]

NARRATIVE: CASE EVENT DATE: 20231001
